FAERS Safety Report 18396324 (Version 4)
Quarter: 2020Q4

REPORT INFORMATION
  Report Type: Report from Study
  Country: CN (occurrence: CN)
  Receive Date: 20201019
  Receipt Date: 20201120
  Transmission Date: 20210114
  Serious: Yes (Hospitalization)
  Sender: FDA-Public Use
  Company Number: CN-ROCHE-2694428

PATIENT
  Age: 41 Year
  Sex: Male
  Weight: 82 kg

DRUGS (27)
  1. PEMETREXED. [Suspect]
     Active Substance: PEMETREXED
     Indication: NON-SMALL CELL LUNG CANCER
     Dosage: ON 11/SEP/2020, HE RECEIVED THE LAST DOSE OF INTRAVENOUS PEMETREXED PRIOR TO THE ONSET OF SERIOUS AD
     Route: 042
     Dates: start: 20200911
  2. DEXAMETHASONE ACETATE [Concomitant]
     Active Substance: DEXAMETHASONE ACETATE
     Route: 048
     Dates: start: 20201102
  3. OMEPRAZOLE MAGNESIUM. [Concomitant]
     Active Substance: OMEPRAZOLE MAGNESIUM
     Indication: PROPHYLAXIS
     Dates: start: 20200911, end: 20200914
  4. TROPISETRON HYDROCHLORIDE [Concomitant]
     Active Substance: TROPISETRON HYDROCHLORIDE
     Indication: PROPHYLAXIS
     Dates: start: 20200911, end: 20200911
  5. LANSOPRAZOLE. [Concomitant]
     Active Substance: LANSOPRAZOLE
     Dates: start: 20201014, end: 20201014
  6. BETAMETHASONE. [Concomitant]
     Active Substance: BETAMETHASONE
     Route: 042
     Dates: start: 20201014, end: 20201014
  7. DEXAMETHASONE ACETATE [Concomitant]
     Active Substance: DEXAMETHASONE ACETATE
     Route: 048
     Dates: start: 20201014, end: 20201015
  8. ONDANSETRON HYDROCHLORIDE. [Concomitant]
     Active Substance: ONDANSETRON HYDROCHLORIDE
     Indication: PROPHYLAXIS
     Dates: start: 20200911, end: 20200915
  9. TROPISETRON HYDROCHLORIDE [Concomitant]
     Active Substance: TROPISETRON HYDROCHLORIDE
     Dates: start: 20201014, end: 20201014
  10. BETAMETHASONE. [Concomitant]
     Active Substance: BETAMETHASONE
     Route: 042
     Dates: start: 20201103, end: 20201103
  11. TROPISETRON HYDROCHLORIDE [Concomitant]
     Active Substance: TROPISETRON HYDROCHLORIDE
     Dates: start: 20201103, end: 20201103
  12. LANSOPRAZOLE. [Concomitant]
     Active Substance: LANSOPRAZOLE
     Dates: start: 20201103, end: 20201103
  13. DEXAMETHASONE ACETATE [Concomitant]
     Active Substance: DEXAMETHASONE ACETATE
     Route: 048
     Dates: start: 20200912, end: 20200912
  14. DEXAMETHASONE ACETATE [Concomitant]
     Active Substance: DEXAMETHASONE ACETATE
     Route: 048
     Dates: start: 20201016, end: 20201016
  15. BEVACIZUMAB. [Suspect]
     Active Substance: BEVACIZUMAB
     Indication: NON-SMALL CELL LUNG CANCER
     Dosage: ON 11/SEP/2020, HE RECEIVED THE LAST DOSE OF INTRAVENOUS BEVACIZUMAB 1230 MG PRIOR TO THE ONSET OF S
     Route: 042
     Dates: start: 20200911
  16. FOLIC ACID. [Concomitant]
     Active Substance: FOLIC ACID
     Indication: PROPHYLAXIS
     Dates: start: 20200904
  17. LANSOPRAZOLE. [Concomitant]
     Active Substance: LANSOPRAZOLE
     Dates: start: 20201013, end: 20201013
  18. DEXAMETHASONE ACETATE [Concomitant]
     Active Substance: DEXAMETHASONE ACETATE
     Indication: PROPHYLAXIS
     Route: 048
     Dates: start: 20200910, end: 20200911
  19. ATEZOLIZUMAB. [Suspect]
     Active Substance: ATEZOLIZUMAB
     Indication: NON-SMALL CELL LUNG CANCER
     Dosage: ON 11/SEP/2020, HE RECEIVED MOST RECENT DOSE OF INTRAVENOUS ATEZOLIZUMAB PRIOR TO THE ONSET OF SERIO
     Route: 042
     Dates: start: 20200911
  20. LANSOPRAZOLE. [Concomitant]
     Active Substance: LANSOPRAZOLE
     Indication: PROPHYLAXIS
     Dates: start: 20200911, end: 20200911
  21. BETAMETHASONE. [Concomitant]
     Active Substance: BETAMETHASONE
     Route: 042
     Dates: start: 20200911, end: 20200911
  22. LORATADINE. [Concomitant]
     Active Substance: LORATADINE
     Indication: RASH
     Dates: start: 20201015, end: 20201020
  23. CARBOPLATIN. [Suspect]
     Active Substance: CARBOPLATIN
     Indication: NON-SMALL CELL LUNG CANCER
     Dosage: ON 11/SEP/2020, HE RECEIVED THE LAST DOSE OF INTRAVENOUS CARBOPLATIN PRIOR TO THE ONSET OF SERIOUS A
     Route: 042
     Dates: start: 20200911
  24. MAGNESIUM ISOGLYCYRRHIZINATE [Concomitant]
     Active Substance: MAGNESIUM ISOGLYCYRRHIZINATE
     Dates: start: 20201014, end: 20201014
  25. MAGNESIUM ISOGLYCYRRHIZINATE [Concomitant]
     Active Substance: MAGNESIUM ISOGLYCYRRHIZINATE
     Dates: start: 20201103, end: 20201103
  26. DEXAMETHASONE ACETATE [Concomitant]
     Active Substance: DEXAMETHASONE ACETATE
     Route: 048
     Dates: start: 20201013, end: 20201013
  27. LEUCOGEN [Concomitant]
     Active Substance: LEUCOGEN
     Indication: PROPHYLAXIS
     Dates: start: 20200911, end: 20200926

REACTIONS (1)
  - Hepatic function abnormal [Not Recovered/Not Resolved]

NARRATIVE: CASE EVENT DATE: 20200923
